FAERS Safety Report 22796876 (Version 5)
Quarter: 2024Q2

REPORT INFORMATION
  Report Type: Report from Study
  Country: US (occurrence: US)
  Receive Date: 20230808
  Receipt Date: 20240618
  Transmission Date: 20240716
  Serious: Yes (Other)
  Sender: FDA-Public Use
  Company Number: US-ABBVIE-5357255

PATIENT
  Sex: Female

DRUGS (3)
  1. HUMIRA [Suspect]
     Active Substance: ADALIMUMAB
     Indication: Colitis ulcerative
     Dosage: FORM STRENGTH: 40MG?CITRATE FREE
     Route: 058
     Dates: start: 20230615
  2. HUMIRA [Suspect]
     Active Substance: ADALIMUMAB
     Dosage: FORM STRENGTH: 40MG?CITRATE FREE, LAST ADMIN DATE 2023
     Route: 058
     Dates: start: 20230101
  3. HUMIRA [Suspect]
     Active Substance: ADALIMUMAB
     Dosage: FORM STRENGTH: 40MG?CITRATE FREE
     Route: 058

REACTIONS (17)
  - Seizure [Recovered/Resolved]
  - Nephrolithiasis [Unknown]
  - Amnesia [Recovering/Resolving]
  - Seizure [Not Recovered/Not Resolved]
  - Colitis ulcerative [Unknown]
  - Headache [Recovering/Resolving]
  - Confusional state [Recovering/Resolving]
  - Inflammation [Unknown]
  - Dermatitis [Unknown]
  - Gastrointestinal inflammation [Unknown]
  - Gastrointestinal pain [Unknown]
  - Abdominal distension [Unknown]
  - Brain fog [Unknown]
  - Somnolence [Unknown]
  - Pain [Unknown]
  - Back pain [Unknown]
  - Feeding disorder [Unknown]

NARRATIVE: CASE EVENT DATE: 20230101
